FAERS Safety Report 17207522 (Version 3)
Quarter: 2020Q1

REPORT INFORMATION
  Report Type: Report from Study
  Country: CA (occurrence: CA)
  Receive Date: 20191227
  Receipt Date: 20200313
  Transmission Date: 20200409
  Serious: Yes (Hospitalization)
  Sender: FDA-Public Use
  Company Number: CA-JNJFOC-20191234981

PATIENT
  Age: 59 Year
  Sex: Female
  Weight: 45 kg

DRUGS (1)
  1. STELARA [Suspect]
     Active Substance: USTEKINUMAB
     Indication: CROHN^S DISEASE
     Dosage: STRENGTH = 90 MG
     Route: 058
     Dates: start: 20170607

REACTIONS (9)
  - Abdominal pain [Unknown]
  - Product use issue [Unknown]
  - Abdominal abscess [Recovered/Resolved]
  - Frequent bowel movements [Not Recovered/Not Resolved]
  - Asthenia [Unknown]
  - Surgery [Recovering/Resolving]
  - Post procedural infection [Recovering/Resolving]
  - Off label use [Unknown]
  - Abscess [Recovering/Resolving]

NARRATIVE: CASE EVENT DATE: 20170802
